FAERS Safety Report 17175538 (Version 1)
Quarter: 2019Q4

REPORT INFORMATION
  Report Type: Spontaneous
  Country: US (occurrence: US)
  Receive Date: 20191219
  Receipt Date: 20191219
  Transmission Date: 20200122
  Serious: Yes (Other)
  Sender: FDA-Public Use
  Company Number: US-BAYER-2019-231183

PATIENT
  Age: 33 Year
  Sex: Female

DRUGS (2)
  1. MIRENA [Suspect]
     Active Substance: LEVONORGESTREL
     Indication: CONTRACEPTION
     Dosage: 20 MCG/24HR, CONT
     Route: 015
     Dates: start: 20170513, end: 20190602
  2. MIRENA [Suspect]
     Active Substance: LEVONORGESTREL
     Indication: CONTRACEPTION
     Dosage: UNK

REACTIONS (10)
  - Pelvic pain [Not Recovered/Not Resolved]
  - Discomfort [Not Recovered/Not Resolved]
  - Coital bleeding [Not Recovered/Not Resolved]
  - Abdominal pain lower [None]
  - Pelvic sepsis [None]
  - Pelvic inflammatory disease [Not Recovered/Not Resolved]
  - Abdominal distension [None]
  - Menorrhagia [None]
  - Dysmenorrhoea [None]
  - Weight increased [None]

NARRATIVE: CASE EVENT DATE: 20170613
